FAERS Safety Report 8159585-4 (Version None)
Quarter: 2012Q1

REPORT INFORMATION
  Report Type: 
  Country: None (occurrence: None)
  Receive Date: 20120223
  Receipt Date: 20120214
  Transmission Date: 20120608
  Serious: Yes (Hospitalization)
  Sender: FDA-Public Use
  Company Number: FR-ROCHE-1040178

PATIENT
  Sex: Female
  Weight: 54 kg

DRUGS (3)
  1. COPEGUS [Suspect]
     Indication: CHRONIC MYELOID LEUKAEMIA
  2. NILOTINIB HYDROCHLORIDE [Suspect]
     Indication: CHRONIC MYELOID LEUKAEMIA
     Dosage: DATE OF LAST DOSE PRIOR TO SAE: 30/JAN/2012
     Route: 048
     Dates: start: 20110728
  3. PEGINTERFERON ALFA-2A [Suspect]
     Indication: CHRONIC MYELOID LEUKAEMIA
     Dosage: DATE OF LAST DOSE PRIOR TO SAE: /JAN/2012
     Dates: start: 20111222

REACTIONS (2)
  - GENERAL PHYSICAL HEALTH DETERIORATION [None]
  - PYREXIA [None]
